FAERS Safety Report 7227473-3 (Version None)
Quarter: 2011Q1

REPORT INFORMATION
  Report Type: 
  Country: None (occurrence: None)
  Receive Date: 20110114
  Receipt Date: 20110112
  Transmission Date: 20110831
  Serious: Yes (Life-Threatening, Hospitalization, Other)
  Sender: FDA-Public Use
  Company Number: GXKR2011DE00562

PATIENT
  Age: 78 Year
  Sex: Female
  Weight: 90 kg

DRUGS (4)
  1. CEFUHEXAL [Suspect]
     Dosage: 500 MG, QD
     Route: 048
     Dates: start: 20101019, end: 20101021
  2. CEFUHEXAL [Suspect]
     Dosage: 500 MG, BID
     Route: 048
     Dates: start: 20101020, end: 20101021
  3. DIOVAN [Suspect]
     Dosage: 80 MG, QD
     Route: 048
     Dates: start: 20101019, end: 20101022
  4. IOPROMIDE [Suspect]
     Indication: ARTERIOGRAM CORONARY
     Dosage: 192250 MG, ONCE/SINGLE
     Route: 042
     Dates: start: 20101020, end: 20101020

REACTIONS (2)
  - BLOOD CREATININE INCREASED [None]
  - RENAL FAILURE ACUTE [None]
